FAERS Safety Report 20342871 (Version 2)
Quarter: 2022Q1

REPORT INFORMATION
  Report Type: Spontaneous
  Country: US (occurrence: US)
  Receive Date: 20220117
  Receipt Date: 20220202
  Transmission Date: 20220423
  Serious: Yes (Death, Other)
  Sender: FDA-Public Use
  Company Number: US-TEVA-2022-US-2000122

PATIENT
  Sex: Male

DRUGS (12)
  1. VALSARTAN [Suspect]
     Active Substance: VALSARTAN
     Indication: Hypertension
     Dates: start: 20150407, end: 20160610
  2. VALSARTAN [Suspect]
     Active Substance: VALSARTAN
     Indication: Hypertension
     Dates: start: 20160801, end: 20160831
  3. VALSARTAN [Suspect]
     Active Substance: VALSARTAN
     Dates: start: 20160902, end: 20161201
  4. VALSARTAN [Suspect]
     Active Substance: VALSARTAN
     Dates: start: 20161024, end: 20170122
  5. VALSARTAN [Suspect]
     Active Substance: VALSARTAN
     Dates: start: 20161122, end: 20161222
  6. VALSARTAN [Suspect]
     Active Substance: VALSARTAN
     Dates: start: 20170127, end: 20170401
  7. VALSARTAN [Suspect]
     Active Substance: VALSARTAN
     Dates: start: 20170407, end: 20170706
  8. VALSARTAN [Suspect]
     Active Substance: VALSARTAN
     Dates: start: 20171018, end: 20180116
  9. VALSARTAN [Suspect]
     Active Substance: VALSARTAN
     Dates: start: 20171215, end: 20180702
  10. VALSARTAN [Suspect]
     Active Substance: VALSARTAN
     Indication: Hypertension
     Dates: start: 20180718, end: 20190113
  11. VALSARTAN [Suspect]
     Active Substance: VALSARTAN
     Indication: Hypertension
     Dates: start: 20191205, end: 20200104
  12. VALSARTAN [Suspect]
     Active Substance: VALSARTAN
     Indication: Hypertension
     Dates: start: 20190124, end: 20190424

REACTIONS (2)
  - Death [Fatal]
  - Pancreatic carcinoma [Unknown]
